FAERS Safety Report 5561419-9 (Version None)
Quarter: 2007Q4

REPORT INFORMATION
  Report Type: 
  Country: None (occurrence: None)
  Receive Date: 20071215
  Receipt Date: 20071021
  Transmission Date: 20080405
  Serious: No
  Sender: FDA-Public Use
  Company Number: US-AMGEN-KDL248910

PATIENT
  Sex: Female

DRUGS (4)
  1. ENBREL [Suspect]
     Indication: RHEUMATOID ARTHRITIS
  2. VICODIN [Concomitant]
  3. METHOTREXATE [Concomitant]
  4. ADVIL LIQUI-GELS [Concomitant]

REACTIONS (2)
  - INJECTION SITE PAIN [None]
  - RHEUMATOID ARTHRITIS [None]
